FAERS Safety Report 9422712 (Version 2)
Quarter: 2013Q3

REPORT INFORMATION
  Report Type: Spontaneous
  Country: US (occurrence: None)
  Receive Date: 20130724
  Receipt Date: 20130730
  Transmission Date: 20140515
  Serious: Yes (Hospitalization)
  Sender: FDA-Public Use
  Company Number: 2013-1019

PATIENT
  Age: 75 Year
  Sex: Female

DRUGS (4)
  1. KYPROLIS (CARFILZOMIB)(INJECTION FOR INFUSION)(CARFILZOMIB) [Suspect]
     Indication: PLASMA CELL MYELOMA
     Dosage: (2 IN 1 WK)
     Route: 042
     Dates: start: 20130423, end: 201306
  2. ZOMETA (ZOLEDRONIC ACID) (ZOLEDRONIC ACID) [Concomitant]
  3. JANUMET (METFORMIN HYDROCHLORIDE, SITAGLIPTIN PHOSPHAE MONOHYDRATE) (METFORMIN HYDRORIDE, SITAGLIPTIN PHOSPHOSE MONOHYDRATE) [Concomitant]
  4. UNKNOWN DRUG FOR HYPERTENSION (NULL) (NULL) [Concomitant]

REACTIONS (11)
  - Pyrexia [None]
  - Urinary tract infection [None]
  - Pain [None]
  - Blood pressure fluctuation [None]
  - Asthenia [None]
  - Mental status changes [None]
  - Drug ineffective [None]
  - Sepsis [None]
  - Insomnia [None]
  - Pain in extremity [None]
  - Cardiac disorder [None]
